FAERS Safety Report 10611894 (Version 3)
Quarter: 2015Q1

REPORT INFORMATION
  Report Type: Spontaneous
  Country: CH (occurrence: CH)
  Receive Date: 20141126
  Receipt Date: 20150113
  Transmission Date: 20150720
  Serious: Yes (Disabling, Other)
  Sender: FDA-Public Use
  Company Number: CH-BMSGILMSD-2014-0124290

PATIENT
  Age: 50 Year
  Sex: Male
  Weight: 74 kg

DRUGS (2)
  1. EVIPLERA [Concomitant]
     Active Substance: EMTRICITABINE\RILPIVIRINE\TENOFOVIR DISOPROXIL FUMARATE
     Indication: HIV INFECTION
     Dosage: 1 DF, UNK
     Route: 048
     Dates: start: 201310
  2. ATRIPLA [Suspect]
     Active Substance: EFAVIRENZ\EMTRICITABINE\TENOFOVIR DISOPROXIL FUMARATE
     Indication: HIV INFECTION
     Dosage: 1 DF, UNK
     Route: 048
     Dates: start: 201010, end: 201310

REACTIONS (3)
  - Off label use [Unknown]
  - Polychondritis [Unknown]
  - Dyslipidaemia [Recovered/Resolved]

NARRATIVE: CASE EVENT DATE: 201108
